FAERS Safety Report 17130620 (Version 1)
Quarter: 2019Q4

REPORT INFORMATION
  Report Type: Other
  Country: US (occurrence: US)
  Receive Date: 20191209
  Receipt Date: 20191209
  Transmission Date: 20200122
  Serious: Yes (Other)
  Sender: FDA-Public Use
  Company Number: US-BRECKENRIDGE PHARMACEUTICAL, INC.-2077629

PATIENT
  Age: 46 Year
  Sex: Female

DRUGS (1)
  1. OMEPRAZOLE. [Suspect]
     Active Substance: OMEPRAZOLE
     Indication: GASTROOESOPHAGEAL REFLUX DISEASE
     Route: 048

REACTIONS (1)
  - Uveitis [None]
